FAERS Safety Report 7415746-0 (Version None)
Quarter: 2011Q2

REPORT INFORMATION
  Report Type: 
  Country: None (occurrence: None)
  Receive Date: 20110406
  Receipt Date: 20110321
  Transmission Date: 20111010
  Serious: Yes (Other)
  Sender: FDA-Public Use
  Company Number: DSA_45254_2011

PATIENT
  Age: 49 Year
  Sex: Female

DRUGS (7)
  1. LASILIX (LASILIX-FUROSEMIDE) (NOT SPECIFIED) [Suspect]
     Indication: PRODUCT USED FOR UNKNOWN INDICATION
     Dosage: DF, ORAL
     Route: 048
     Dates: end: 20101109
  2. MEDIATOR (MEDIATOR-BENFLUOREX HCL) [Suspect]
     Indication: TYPE 2 DIABETES MELLITUS
     Dosage: DF, ORAL
     Route: 048
     Dates: start: 20000916, end: 20091101
  3. AMLOR (AMLOR-AMLODIPINE BESYLATE) (NOT SPECIFIED) [Suspect]
     Indication: PRODUCT USED FOR UNKNOWN INDICATION
     Dosage: DF, ORAL
     Route: 048
     Dates: start: 20070101, end: 20101109
  4. ENALAPRIL MALEATE [Suspect]
     Indication: HYPERTENSION
     Dosage: DF, ORAL (NOT SPECIFIED)
     Route: 048
  5. LEVOTHYROXINE SODIUM [Suspect]
     Indication: PRODUCT USED FOR UNKNOWN INDICATION
     Dosage: 75 UG QD, ORAL
     Route: 048
     Dates: start: 20060101
  6. DIFFU K (DIFFU-K-POTASSIUM CHLORIDE (NOT SPECIFIED) [Suspect]
     Indication: PRODUCT USED FOR UNKNOWN INDICATION
     Dosage: 1 CAPSULE TWICE A DAY, ORAL
     Route: 048
     Dates: end: 20101109
  7. TAHOR (TAHOR-ATORVASTATIN CALCIUM) (NOT SPECIFIED) [Suspect]
     Indication: PRODUCT USED FOR UNKNOWN INDICATION
     Dosage: DF, ORAL
     Route: 048
     Dates: start: 20070101

REACTIONS (6)
  - BLOOD PRESSURE INCREASED [None]
  - AORTIC VALVE INCOMPETENCE [None]
  - DYSPNOEA [None]
  - MITRAL VALVE INCOMPETENCE [None]
  - VENOUS INSUFFICIENCY [None]
  - PULMONARY ARTERIAL HYPERTENSION [None]
